FAERS Safety Report 23009477 (Version 2)
Quarter: 2023Q4

REPORT INFORMATION
  Report Type: Spontaneous
  Country: DO (occurrence: DO)
  Receive Date: 20230929
  Receipt Date: 20231003
  Transmission Date: 20240110
  Serious: No
  Sender: FDA-Public Use
  Company Number: DO-009507513-2106DOM004553

PATIENT
  Age: 45 Year
  Sex: Female
  Weight: 149 kg

DRUGS (2)
  1. KEYTRUDA [Suspect]
     Active Substance: PEMBROLIZUMAB
     Indication: Glioblastoma
     Dosage: 200 MILLIGRAM, EVERY 21 DAYS; 1 CYCLE
     Route: 042
     Dates: start: 202106
  2. AVASTIN [Suspect]
     Active Substance: BEVACIZUMAB
     Indication: Glioblastoma
     Dosage: 1200 MILLIGRAM; EVERY21 DAYS; 1 CYCLE
     Route: 042
     Dates: start: 202106, end: 202106

REACTIONS (2)
  - Off label use [Unknown]
  - No adverse event [Unknown]
